FAERS Safety Report 4406469-0 (Version None)
Quarter: 2004Q3

REPORT INFORMATION
  Report Type: 
  Country: None (occurrence: None)
  Receive Date: 20040716
  Receipt Date: 20040713
  Transmission Date: 20050211
  Serious: Yes (Death, Life-Threatening)
  Sender: FDA-Public Use
  Company Number: 200410413BNE

PATIENT
  Age: 92 Year
  Sex: Female
  Weight: 80 kg

DRUGS (7)
  1. ASPIRIN [Suspect]
     Indication: TRANSIENT ISCHAEMIC ATTACK
     Dosage: ORAL
     Route: 048
     Dates: end: 20040517
  2. ETORICOXIB [Suspect]
     Indication: OSTEOARTHRITIS
     Dosage: ORAL
     Route: 048
     Dates: end: 20040517
  3. VITAMIN B COMPLEX CAP [Concomitant]
  4. FOLIC ACID [Concomitant]
  5. IRON SULPHATE [Concomitant]
  6. BENDROFLUMETHIAZIDE [Concomitant]
  7. VITAMIN B-12 [Concomitant]

REACTIONS (9)
  - AORTIC ANEURYSM [None]
  - GASTRIC ULCER PERFORATION [None]
  - GENERAL PHYSICAL HEALTH DETERIORATION [None]
  - HYPERTENSION [None]
  - LEFT VENTRICULAR FAILURE [None]
  - LOWER RESPIRATORY TRACT INFECTION [None]
  - PNEUMONIA ASPIRATION [None]
  - RESPIRATORY RATE INCREASED [None]
  - VOMITING [None]
